FAERS Safety Report 11224341 (Version 7)
Quarter: 2016Q4

REPORT INFORMATION
  Report Type: Report from Study
  Country: PL (occurrence: PL)
  Receive Date: 20150629
  Receipt Date: 20161213
  Transmission Date: 20170206
  Serious: Yes (Other)
  Sender: FDA-Public Use
  Company Number: PL-AMGEN-POLCT2015063532

PATIENT
  Age: 66 Year
  Sex: Female

DRUGS (77)
  1. EZETIMIBE. [Concomitant]
     Active Substance: EZETIMIBE
     Indication: HYPERLIPIDAEMIA
     Dosage: 10 MG, 1X/DAY
     Route: 048
     Dates: start: 2010, end: 20121127
  2. CALCII CARBONAS [Concomitant]
     Dosage: 1000 MG, 3 IN 1 WK
     Route: 048
     Dates: start: 20130114, end: 20131114
  3. CLINDAMYCIN. [Concomitant]
     Active Substance: CLINDAMYCIN
     Indication: SINUSITIS
     Dosage: 300 MG, 3X/DAY
     Route: 048
     Dates: start: 20120525, end: 20120531
  4. KALII CHLORIDI [Concomitant]
     Dosage: 391 MG, 2X/DAY
     Route: 048
     Dates: start: 20121105, end: 20130113
  5. ALLOPURINOL. [Concomitant]
     Active Substance: ALLOPURINOL
     Dosage: 100 MUG, 1X/DAY
     Route: 048
     Dates: start: 20130114, end: 20140409
  6. METHYLPREDNISOLON [Concomitant]
     Active Substance: METHYLPREDNISOLONE
     Indication: RHEUMATOID ARTHRITIS
     Dosage: 4 MG, 1X/DAY
     Route: 048
     Dates: start: 20110715, end: 20120525
  7. METHYLPREDNISOLON [Concomitant]
     Active Substance: METHYLPREDNISOLONE
     Dosage: 6 MG, 1X/DAY
     Route: 048
     Dates: start: 20141216
  8. PROPAFENON [Concomitant]
     Active Substance: PROPAFENONE
     Indication: ATRIAL FIBRILLATION
     Dosage: 75 MG, 3X/DAY
     Route: 048
     Dates: start: 20120710, end: 20120917
  9. PROPAFENON [Concomitant]
     Active Substance: PROPAFENONE
     Dosage: 75 MG, 2X/DAY
     Route: 048
     Dates: start: 20121105
  10. FUROSEMID [Concomitant]
     Active Substance: FUROSEMIDE
     Dosage: 40 MG, 1X/DAY
     Route: 048
     Dates: start: 20121024, end: 20130113
  11. ALLOPURINOL. [Concomitant]
     Active Substance: ALLOPURINOL
     Dosage: 300 MG, 1X/DAY
     Route: 048
     Dates: start: 20130410, end: 20140917
  12. CIPROFLOXACIN. [Concomitant]
     Active Substance: CIPROFLOXACIN
     Indication: WOUND INFECTION
     Dosage: 500 MG, 2X/DAY
     Route: 048
     Dates: start: 20130914, end: 20130929
  13. BISOPROLOL [Concomitant]
     Active Substance: BISOPROLOL
     Indication: HYPERTENSION
     Dosage: 2.5 MG, 1X/DAY
     Route: 048
     Dates: start: 2006, end: 20120109
  14. CALCII CARBONAS [Concomitant]
     Dosage: 1000 MG, 1X/DAY
     Route: 048
     Dates: start: 20121105, end: 20130113
  15. ALENDRONIC ACID [Concomitant]
     Active Substance: ALENDRONIC ACID
     Indication: OSTEOPOROSIS
     Dosage: 70 MG, 1X/DAY
     Route: 048
     Dates: start: 2008, end: 20120917
  16. POTASSIUM CHLORIDE. [Concomitant]
     Active Substance: POTASSIUM CHLORIDE
     Dosage: 391 MG, 1X/DAY
     Route: 048
     Dates: start: 20130114
  17. FUROSEMID [Concomitant]
     Active Substance: FUROSEMIDE
     Indication: RENAL FAILURE
     Dosage: 80 MG, 2X/DAY
     Route: 048
     Dates: start: 20120917, end: 20121024
  18. FUROSEMID [Concomitant]
     Active Substance: FUROSEMIDE
     Dosage: 80 MG, 1X/DAY
     Route: 048
     Dates: start: 20130114, end: 20130917
  19. ALFACALCIDOL [Concomitant]
     Active Substance: ALFACALCIDOL
     Indication: OSTEOPOROSIS
     Dosage: 0.5 MUG, 1X/DAY
     Route: 048
     Dates: start: 20120917
  20. ALLOPURINOL. [Concomitant]
     Active Substance: ALLOPURINOL
     Dosage: 100 MG, 1X/DAY
     Route: 048
     Dates: start: 20121029, end: 20121104
  21. ALLOPURINOL. [Concomitant]
     Active Substance: ALLOPURINOL
     Dosage: 200 MG, 1X/DAY
     Route: 048
     Dates: start: 20140918, end: 20141218
  22. ALLOPURINOL. [Concomitant]
     Active Substance: ALLOPURINOL
     Dosage: 200 MG, 1X/DAY
     Route: 048
     Dates: start: 20140918, end: 20141218
  23. ALLOPURINOL. [Concomitant]
     Active Substance: ALLOPURINOL
     Dosage: 100 MG, 1X/DAY
     Route: 048
     Dates: start: 20141219
  24. IRON [Concomitant]
     Active Substance: IRON
     Dosage: UNK
  25. METHYLPREDNISOLON [Concomitant]
     Active Substance: METHYLPREDNISOLONE
     Dosage: 8 MG, 1X/DAY
     Route: 048
     Dates: start: 20121001, end: 20121025
  26. METHYLPREDNISOLON [Concomitant]
     Active Substance: METHYLPREDNISOLONE
     Dosage: 6 MG, 1X/DAY
     Route: 048
     Dates: start: 20130207, end: 20130708
  27. BISOPROLOL [Concomitant]
     Active Substance: BISOPROLOL
     Indication: CORONARY ARTERY DISEASE
     Dosage: 5 MG, 1X/DAY
     Route: 048
     Dates: start: 20120710, end: 20120917
  28. CALCII CARBONAS [Concomitant]
     Indication: OSTEOPOROSIS
     Dosage: 1000 MG, 3X/DAY
     Route: 048
     Dates: start: 20120917, end: 20121104
  29. ALENDRONIC ACID [Concomitant]
     Active Substance: ALENDRONIC ACID
     Indication: OSTEOPOROSIS POSTMENOPAUSAL
     Dosage: UNK
  30. MELOXICAM. [Concomitant]
     Active Substance: MELOXICAM
     Indication: RHEUMATOID ARTHRITIS
     Dosage: 15 MG, 1X/DAY
     Route: 048
     Dates: start: 201105, end: 20120917
  31. AMOKSIKLAV [Concomitant]
     Active Substance: AMOXICILLIN\CLAVULANATE POTASSIUM
     Indication: WOUND INFECTION
     Dosage: 2000 MG, 2X/DAY
     Route: 042
     Dates: start: 20130904, end: 20130910
  32. CLOPIDOGREL [Concomitant]
     Active Substance: CLOPIDOGREL BISULFATE
     Indication: CAROTID ARTERY DISEASE
     Dosage: 75 MG, 1X/DAY
     Route: 048
     Dates: start: 20120427
  33. RAMIPRIL. [Concomitant]
     Active Substance: RAMIPRIL
     Dosage: 5 MG, 1X/DAY
     Route: 048
  34. PARACETAMOL [Concomitant]
     Active Substance: ACETAMINOPHEN
     Indication: RHEUMATOID ARTHRITIS
     Dosage: 500 MG, 1 IN 1 AS REQUIRED
     Route: 048
     Dates: start: 20120917
  35. DICLOFENAC [Concomitant]
     Active Substance: DICLOFENAC
     Indication: RHEUMATOID ARTHRITIS
     Dosage: 50 MG, AS NEEDED
     Route: 048
     Dates: end: 20120917
  36. CLARITHROMYCIN. [Concomitant]
     Active Substance: CLARITHROMYCIN
     Indication: PNEUMONITIS
     Dosage: 500 MG, 2X/DAY
     Route: 048
     Dates: start: 20140709, end: 20140715
  37. ALCLOMETASONE [Concomitant]
     Active Substance: ALCLOMETASONE
     Indication: DERMATITIS ALLERGIC
     Dosage: 0.5 MG, 1X/DAY
     Route: 062
     Dates: start: 20121121, end: 20121129
  38. METHYLPREDNISOLON [Concomitant]
     Active Substance: METHYLPREDNISOLONE
     Dosage: 8 MG, 1X/DAY
     Route: 048
     Dates: start: 20130709, end: 20141215
  39. METHYLPREDNISOLON [Concomitant]
     Active Substance: METHYLPREDNISOLONE
     Dosage: 8 MG, 1X/DAY
     Route: 048
     Dates: start: 20150911
  40. BISOPROLOL [Concomitant]
     Active Substance: BISOPROLOL
     Dosage: 2.5 MG, 1X/DAY
     Route: 048
     Dates: start: 20120917, end: 20130113
  41. CALCII CARBONAS [Concomitant]
     Indication: OSTEOPOROSIS POSTMENOPAUSAL
     Dosage: 600 MG, 2X/DAY
     Route: 048
     Dates: start: 201105, end: 20120917
  42. RAMIPRIL. [Concomitant]
     Active Substance: RAMIPRIL
     Indication: HYPERTENSION
     Dosage: 10 MG, 2X/DAY
     Route: 048
     Dates: start: 20120710, end: 20120917
  43. LACIDIPINE [Concomitant]
     Active Substance: LACIDIPINE
     Dosage: 4 MG, 1 IN 1 AS REQUIRED
     Route: 048
     Dates: start: 20130114, end: 20131113
  44. ALCLOMETASONE [Concomitant]
     Active Substance: ALCLOMETASONE
     Indication: DERMATITIS ALLERGIC
  45. HYDROXYCHLOROQUINE [Concomitant]
     Active Substance: HYDROXYCHLOROQUINE
     Indication: RHEUMATOID ARTHRITIS
     Dosage: 200 MG, 1X/DAY
     Route: 048
     Dates: start: 20150910
  46. METHOTREXATE. [Concomitant]
     Active Substance: METHOTREXATE
     Dosage: 15 MG, WEEKLY
     Route: 048
     Dates: start: 201203, end: 20120917
  47. METHYLPREDNISOLON [Concomitant]
     Active Substance: METHYLPREDNISOLONE
     Dosage: 250 MG, 1X/DAY
     Route: 042
     Dates: start: 20121025, end: 20121027
  48. METHYLPREDNISOLON [Concomitant]
     Active Substance: METHYLPREDNISOLONE
     Dosage: 16 MG, 1X/DAY
     Route: 048
     Dates: start: 20121028, end: 20121104
  49. METHYLPREDNISOLON [Concomitant]
     Active Substance: METHYLPREDNISOLONE
     Dosage: 8 MG, 1X/DAY
     Route: 048
     Dates: start: 20121105, end: 20130206
  50. EZETIMIBE. [Concomitant]
     Active Substance: EZETIMIBE
     Indication: HYPERCHOLESTEROLAEMIA
     Dosage: UNK
  51. BISOPROLOL [Concomitant]
     Active Substance: BISOPROLOL
     Dosage: UNK
  52. CHOLECALCIFEROL [Concomitant]
     Active Substance: CHOLECALCIFEROL
     Indication: OSTEOPOROSIS POSTMENOPAUSAL
     Dosage: 800 IU, 2X/DAY
     Route: 048
     Dates: start: 201105, end: 20120917
  53. LACIDIPINE [Concomitant]
     Active Substance: LACIDIPINE
     Indication: HYPERTENSION
     Dosage: 4 MG, 1X/DAY
     Route: 048
     Dates: start: 20120917, end: 20130113
  54. ALLOPURINOL. [Concomitant]
     Active Substance: ALLOPURINOL
     Dosage: 100 MG, 2X/DAY
     Route: 048
     Dates: start: 20121105, end: 20130113
  55. DENOSUMAB [Concomitant]
     Active Substance: DENOSUMAB
     Indication: OSTEOPOROSIS
     Dosage: 60 MG, UNK
     Route: 058
     Dates: start: 20140716
  56. LACIDOFIL [Concomitant]
     Active Substance: LACTOBACILLUS ACIDOPHILUS\LACTOBACILLUS RHAMNOSUS
     Dosage: 2000000000 UNITS, 2X/DAY
     Route: 048
     Dates: start: 20130914, end: 20130929
  57. METOPROLOL. [Concomitant]
     Active Substance: METOPROLOL
     Dosage: UNK
  58. ETANERCEPT [Suspect]
     Active Substance: ETANERCEPT
     Indication: RHEUMATOID ARTHRITIS
     Dosage: MOST RECENT DOSE 50MG, 1 IN 1 WK, LAST DOSE PRIOR TO SAE ON 14/MAY/2015
     Route: 058
     Dates: end: 20150514
  59. METHYLPREDNISOLON [Concomitant]
     Active Substance: METHYLPREDNISOLONE
     Dosage: 4 MG, 1X/DAY
     Route: 048
     Dates: start: 201206, end: 20121001
  60. FOLIC ACID. [Concomitant]
     Active Substance: FOLIC ACID
     Indication: PROPHYLAXIS
     Dosage: 15 MG, WEEKLY
     Route: 048
     Dates: start: 201107, end: 20120917
  61. ACETYLSALICYLIC ACID [Concomitant]
     Active Substance: ASPIRIN
     Dosage: 75 MG, 1 IN 2D
     Dates: start: 20130114
  62. PANTOPRAZOL [Concomitant]
     Active Substance: PANTOPRAZOLE SODIUM
     Dosage: 40 MG, 1X/DAY
     Route: 048
     Dates: start: 201105
  63. ENOXAPARIN [Concomitant]
     Active Substance: ENOXAPARIN
     Indication: ATRIAL FIBRILLATION
     Dosage: 40 MG, 1 IN 1 TOTAL
     Route: 058
     Dates: start: 20120625, end: 20120625
  64. ENOXAPARIN [Concomitant]
     Active Substance: ENOXAPARIN
     Indication: ATRIAL FIBRILLATION
     Dosage: 40 MG, 1X/DAY
     Route: 058
     Dates: start: 20130705, end: 20130929
  65. NITRENDIPIN [Concomitant]
     Active Substance: NITRENDIPINE
     Indication: HYPERTENSION
     Dosage: 10 MG, 1 IN 1 AS REQUIRED
     Route: 048
     Dates: start: 20120917
  66. IBANDRONIC ACID [Concomitant]
     Active Substance: IBANDRONIC ACID
     Indication: OSTEOPOROSIS
     Dosage: 150 MG, 1 IN 1 M
     Route: 048
     Dates: start: 20131115, end: 20140715
  67. AZITHROMYCIN ANHYDROUS. [Concomitant]
     Active Substance: AZITHROMYCIN ANHYDROUS
     Indication: PNEUMONITIS
     Dosage: 500 MG, 1X/DAY
     Route: 048
     Dates: start: 20140704, end: 20140708
  68. METOPROLOL. [Concomitant]
     Active Substance: METOPROLOL
     Dosage: UNK
  69. METHOTREXATE. [Concomitant]
     Active Substance: METHOTREXATE
     Indication: RHEUMATOID ARTHRITIS
     Dosage: 1 DF, WEEKLY
     Route: 048
     Dates: start: 201107, end: 201203
  70. FOLIC ACID. [Concomitant]
     Active Substance: FOLIC ACID
     Dosage: 133 MUG, 1X/DAY
     Route: 048
     Dates: start: 20121105, end: 20121120
  71. ACETYLSALICYLIC ACID [Concomitant]
     Active Substance: ASPIRIN
     Indication: CORONARY ARTERY DISEASE
     Dosage: 75 MG, WEEKLY
     Route: 048
     Dates: start: 2006, end: 20130113
  72. BISOPROLOL [Concomitant]
     Active Substance: BISOPROLOL
     Dosage: 5 MG, 1X/DAY
     Route: 048
     Dates: start: 20130114
  73. CALCII CARBONAS [Concomitant]
     Dosage: 1000 MG, 1X/DAY
     Route: 048
     Dates: start: 20141216
  74. AMOKSIKLAV [Concomitant]
     Active Substance: AMOXICILLIN\CLAVULANATE POTASSIUM
     Indication: TONSILLITIS
     Dosage: 2000 MG, 2X/DAY
     Route: 048
     Dates: start: 20120103, end: 20120109
  75. RAMIPRIL. [Concomitant]
     Active Substance: RAMIPRIL
     Dosage: 5 MG, 1X/DAY
     Route: 048
  76. FUROSEMID [Concomitant]
     Active Substance: FUROSEMIDE
     Dosage: 40 MG, 2X/DAY
     Route: 048
     Dates: start: 20121024, end: 20130113
  77. FUROSEMID [Concomitant]
     Active Substance: FUROSEMIDE
     Dosage: 40 MG, 1X/DAY
     Route: 048
     Dates: start: 20140918

REACTIONS (4)
  - Osteonecrosis of jaw [Recovered/Resolved]
  - Palatal disorder [Recovered/Resolved]
  - Osteonecrosis [Recovered/Resolved]
  - Osteomyelitis chronic [Recovered/Resolved]

NARRATIVE: CASE EVENT DATE: 20150518
